FAERS Safety Report 16394516 (Version 2)
Quarter: 2019Q3

REPORT INFORMATION
  Report Type: Spontaneous
  Country: IT (occurrence: IT)
  Receive Date: 20190605
  Receipt Date: 20190702
  Transmission Date: 20191004
  Serious: Yes (Other)
  Sender: FDA-Public Use
  Company Number: IT-JNJFOC-20190542375

PATIENT
  Age: 16 Year
  Sex: Female

DRUGS (2)
  1. PREDNISONE. [Suspect]
     Active Substance: PREDNISONE
     Indication: BRONCHOPULMONARY ASPERGILLOSIS ALLERGIC
     Route: 065
  2. ITRACONAZOLE. [Suspect]
     Active Substance: ITRACONAZOLE
     Indication: BRONCHOPULMONARY ASPERGILLOSIS ALLERGIC
     Route: 048

REACTIONS (3)
  - Drug dependence [Recovered/Resolved]
  - Therapy partial responder [Unknown]
  - Cushing^s syndrome [Recovered/Resolved]
